FAERS Safety Report 8304065-6 (Version None)
Quarter: 2012Q2

REPORT INFORMATION
  Report Type: 
  Country: None (occurrence: None)
  Receive Date: 20120423
  Receipt Date: 20120416
  Transmission Date: 20120825
  Serious: Yes (Other)
  Sender: FDA-Public Use
  Company Number: US-BRISTOL-MYERS SQUIBB COMPANY-16474322

PATIENT
  Sex: Female

DRUGS (5)
  1. IMURAN [Concomitant]
  2. METHOTREXATE [Concomitant]
     Dosage: 1 DF : 7 TABS
  3. LEUCOVORIN CALCIUM [Concomitant]
  4. PREDNISONE TAB [Concomitant]
  5. ABATACEPT SUBQ INJECTION 125MG/ML [Suspect]
     Indication: RHEUMATOID ARTHRITIS
     Route: 058
     Dates: start: 20120113

REACTIONS (2)
  - ANAEMIA [None]
  - GASTRITIS EROSIVE [None]
